FAERS Safety Report 4778307-8 (Version None)
Quarter: 2005Q3

REPORT INFORMATION
  Report Type: 
  Country: None (occurrence: None)
  Receive Date: 20050926
  Receipt Date: 20050126
  Transmission Date: 20060218
  Serious: Yes (Other)
  Sender: FDA-Public Use
  Company Number: US-BRISTOL-MYERS SQUIBB COMPANY-12841318

PATIENT
  Sex: Male

DRUGS (1)
  1. STADOL [Suspect]
     Indication: HEADACHE

REACTIONS (1)
  - DEPENDENCE [None]
